FAERS Safety Report 9132808 (Version 2)
Quarter: 2013Q2

REPORT INFORMATION
  Report Type: Spontaneous
  Country: DE (occurrence: DE)
  Receive Date: 20130301
  Receipt Date: 20130412
  Transmission Date: 20140414
  Serious: Yes (Other)
  Sender: FDA-Public Use
  Company Number: DE-ROCHE-1197184

PATIENT
  Sex: Female
  Weight: 60 kg

DRUGS (5)
  1. AVASTIN [Suspect]
     Indication: OVARIAN CANCER
     Route: 042
     Dates: start: 20120830, end: 20130131
  2. TAXOTERE [Suspect]
     Indication: OVARIAN CANCER
     Route: 042
  3. CARBOPLATIN [Suspect]
     Indication: OVARIAN CANCER
     Route: 042
  4. L-THYROXIN [Concomitant]
     Indication: HYPOTHYROIDISM
     Route: 048
  5. RAMIPRIL [Concomitant]
     Indication: HYPERTENSION
     Route: 048

REACTIONS (1)
  - Dementia [Not Recovered/Not Resolved]
